FAERS Safety Report 10969770 (Version 2)
Quarter: 2015Q1

REPORT INFORMATION
  Report Type: Spontaneous
  Country: US (occurrence: None)
  Receive Date: 20150226
  Receipt Date: 20150226
  Transmission Date: 20150721
  Serious: Yes (Other)
  Sender: FDA-Public Use
  Company Number: TPA2009A03675

PATIENT
  Age: 66 Year
  Sex: Female
  Weight: 89.81 kg

DRUGS (5)
  1. AROMASIN [Concomitant]
     Active Substance: EXEMESTANE
  2. ZIAC (HYDROCHLOROTHIAZIDE, BISOPROLOL FUMARATE) [Concomitant]
  3. LOPID [Concomitant]
     Active Substance: GEMFIBROZIL
  4. ULORIC [Suspect]
     Active Substance: FEBUXOSTAT
     Indication: GOUT
     Route: 048
     Dates: start: 20090813, end: 20091023
  5. INDOCIN (INDOMETACIN) [Concomitant]

REACTIONS (1)
  - Acute kidney injury [None]

NARRATIVE: CASE EVENT DATE: 20091019
